FAERS Safety Report 18407689 (Version 3)
Quarter: 2022Q3

REPORT INFORMATION
  Report Type: Spontaneous
  Country: US (occurrence: US)
  Receive Date: 20201021
  Receipt Date: 20220818
  Transmission Date: 20221027
  Serious: Yes (Other)
  Sender: FDA-Public Use
  Company Number: US-SAARTEMIS-SAC202010150454

PATIENT
  Age: 32 Year
  Sex: Female

DRUGS (1)
  1. ZANTAC [Suspect]
     Active Substance: RANITIDINE HYDROCHLORIDE
     Dosage: 150 MG, QD
     Dates: start: 198601, end: 199201

REACTIONS (2)
  - Thyroid cancer stage II [Unknown]
  - Skin cancer [Unknown]

NARRATIVE: CASE EVENT DATE: 20000101
